FAERS Safety Report 4878072-X (Version None)
Quarter: 2006Q1

REPORT INFORMATION
  Report Type: 
  Country: None (occurrence: None)
  Receive Date: 20060110
  Receipt Date: 20051228
  Transmission Date: 20060701
  Serious: Yes (Other)
  Sender: FDA-Public Use
  Company Number: 2006000967

PATIENT
  Age: 39 Year
  Sex: Female

DRUGS (6)
  1. DETROL [Suspect]
     Indication: HYPERTONIC BLADDER
     Dosage: (DAILY INTERVAL: EVERY DAY)
     Dates: start: 20050901, end: 20050901
  2. INSULIN [Concomitant]
  3. KEPPRA [Concomitant]
  4. TOPAMAX [Concomitant]
  5. IRON (IRON) [Concomitant]
  6. CALCIUM (CALCIUM) [Concomitant]

REACTIONS (2)
  - DRUG INEFFECTIVE [None]
  - NEPHROLITHIASIS [None]
